FAERS Safety Report 12840352 (Version 5)
Quarter: 2018Q1

REPORT INFORMATION
  Report Type: Report from Study
  Country: CO (occurrence: CO)
  Receive Date: 20161012
  Receipt Date: 20180314
  Transmission Date: 20180508
  Serious: Yes (Other)
  Sender: FDA-Public Use
  Company Number: CO-SA-2016SA183208

PATIENT
  Age: 60 Year
  Sex: Female

DRUGS (1)
  1. LEMTRADA [Suspect]
     Active Substance: ALEMTUZUMAB
     Indication: MULTIPLE SCLEROSIS
     Route: 041
     Dates: start: 20160116, end: 20160120

REACTIONS (7)
  - Bacterial test positive [Recovered/Resolved]
  - Blood creatinine increased [Not Recovered/Not Resolved]
  - Lymphopenia [Recovered/Resolved]
  - Eosinophilia [Recovered/Resolved]
  - Eosinophil count increased [Recovered/Resolved]
  - White blood cell count decreased [Recovered/Resolved]
  - Leukopenia [Recovered/Resolved]

NARRATIVE: CASE EVENT DATE: 201610
